FAERS Safety Report 10751327 (Version 1)
Quarter: 2015Q1

REPORT INFORMATION
  Report Type: Spontaneous
  Country: VE (occurrence: None)
  Receive Date: 20150128
  Receipt Date: 20150128
  Transmission Date: 20150721
  Serious: Yes (Death, Hospitalization)
  Sender: FDA-Public Use
  Company Number: 2015JUB00015

PATIENT
  Age: 28 Year
  Sex: Male

DRUGS (5)
  1. OXCARBAZEPINE. [Concomitant]
     Active Substance: OXCARBAZEPINE
  2. CLONAZEPAM. [Concomitant]
     Active Substance: CLONAZEPAM
  3. QUETIAPINE (QUETIAPINE) UNKNOWN, UNKNOWN [Suspect]
     Active Substance: QUETIAPINE
     Indication: BIPOLAR DISORDER
  4. CLOZAPINE. [Suspect]
     Active Substance: CLOZAPINE
     Indication: SCHIZOAFFECTIVE DISORDER
     Dates: start: 201311, end: 201312
  5. PALIPERIDONE [Concomitant]
     Active Substance: PALIPERIDONE

REACTIONS (4)
  - Gastrointestinal hypomotility [None]
  - Colitis ischaemic [None]
  - Pulmonary embolism [None]
  - Faecaloma [None]
